FAERS Safety Report 10434436 (Version 2)
Quarter: 2014Q4

REPORT INFORMATION
  Report Type: Spontaneous
  Country: US (occurrence: US)
  Receive Date: 20140905
  Receipt Date: 20141006
  Transmission Date: 20150528
  Serious: No
  Sender: FDA-Public Use
  Company Number: US-PFIZER INC-2014248469

PATIENT
  Age: 52 Year
  Sex: Female
  Weight: 75.3 kg

DRUGS (1)
  1. CELEBREX [Suspect]
     Active Substance: CELECOXIB
     Indication: ARTHRITIS
     Dosage: UNK, AS NEEDED
     Dates: start: 201402

REACTIONS (2)
  - Epigastric discomfort [Unknown]
  - Abdominal pain upper [Unknown]
